FAERS Safety Report 5894187-1 (Version None)
Quarter: 2008Q3

REPORT INFORMATION
  Report Type: 
  Country: None (occurrence: None)
  Receive Date: 20080922
  Receipt Date: 20080911
  Transmission Date: 20090109
  Serious: Yes (Hospitalization)
  Sender: FDA-Public Use
  Company Number: 2008AL010407

PATIENT
  Age: 85 Year
  Sex: Male
  Weight: 72.5755 kg

DRUGS (1)
  1. DIGOXIN [Suspect]
     Indication: CARDIAC FAILURE CONGESTIVE
     Dosage: 0.125MG, DAILY, PO
     Route: 048

REACTIONS (8)
  - ASTHENIA [None]
  - FALL [None]
  - FATIGUE [None]
  - HEAD INJURY [None]
  - HEART RATE DECREASED [None]
  - INJURY [None]
  - LOSS OF CONSCIOUSNESS [None]
  - WEIGHT DECREASED [None]
